FAERS Safety Report 23968482 (Version 1)
Quarter: 2024Q2

REPORT INFORMATION
  Report Type: Report from Study
  Country: US (occurrence: US)
  Receive Date: 20240612
  Receipt Date: 20240612
  Transmission Date: 20240716
  Serious: Yes (Death, Other)
  Sender: FDA-Public Use
  Company Number: US-TEVA-VS-3164459

PATIENT
  Age: 67 Year
  Sex: Female
  Weight: 84 kg

DRUGS (1)
  1. SPRINTEC [Suspect]
     Active Substance: ETHINYL ESTRADIOL\NORGESTIMATE
     Indication: Drug interaction
     Dosage: 0.25 MG NORGESTIMATE/0.035 MG ETHINYL ESTRADIOL MILLIGRAM,QD
     Route: 048
     Dates: start: 20240129, end: 20240215

REACTIONS (2)
  - Pulmonary embolism [Fatal]
  - Breast pain [Not Recovered/Not Resolved]

NARRATIVE: CASE EVENT DATE: 20240129
